FAERS Safety Report 9330946 (Version 13)
Quarter: 2016Q1

REPORT INFORMATION
  Report Type: Report from Study
  Country: AR (occurrence: AR)
  Receive Date: 20130605
  Receipt Date: 20160205
  Transmission Date: 20160526
  Serious: Yes (Hospitalization)
  Sender: FDA-Public Use
  Company Number: AR-ROCHE-1232004

PATIENT
  Age: 76 Year
  Sex: Female
  Weight: 76 kg

DRUGS (13)
  1. PLACEBO [Suspect]
     Active Substance: UNSPECIFIED INGREDIENT
     Indication: RHEUMATOID ARTHRITIS
     Route: 058
     Dates: start: 20110606, end: 20111017
  2. VALPROIC ACID. [Concomitant]
     Active Substance: VALPROIC ACID
     Route: 048
     Dates: start: 20130605
  3. TOCILIZUMAB [Suspect]
     Active Substance: TOCILIZUMAB
     Indication: RHEUMATOID ARTHRITIS
     Dosage: MOST RECENT DOSE PRIOR TO EVENT ON 24/OCT/2011
     Route: 042
     Dates: start: 20110606, end: 20111024
  4. METHOTREXATE [Concomitant]
     Active Substance: METHOTREXATE
     Indication: RHEUMATOID ARTHRITIS
     Route: 048
     Dates: start: 20120514
  5. AMOXICILLIN. [Concomitant]
     Active Substance: AMOXICILLIN
     Route: 048
     Dates: start: 20130501, end: 20130507
  6. DICLOFENAC [Concomitant]
     Active Substance: DICLOFENAC
     Indication: RHEUMATOID ARTHRITIS
     Route: 048
     Dates: start: 201009
  7. FOLIC ACID. [Concomitant]
     Active Substance: FOLIC ACID
     Indication: RHEUMATOID ARTHRITIS
     Route: 048
     Dates: start: 20120514
  8. SULBACTAM [Concomitant]
     Active Substance: SULBACTAM
     Indication: LOCALISED INFECTION
     Route: 048
     Dates: start: 20130501, end: 20130507
  9. LEVOFLOXACINE [Concomitant]
     Active Substance: LEVOFLOXACIN
     Route: 048
     Dates: start: 20130501, end: 20130507
  10. CIPROFLOXACINE [Concomitant]
     Active Substance: CIPROFLOXACIN
     Route: 048
     Dates: start: 20130501, end: 20130507
  11. TOCILIZUMAB [Suspect]
     Active Substance: TOCILIZUMAB
     Indication: RHEUMATOID ARTHRITIS
     Dosage: MOST RECENT DOSE PRIOR TO EVENT ON 26/FEB/2013, LAST DOSE TAKEN: 28.8 ML. THE DOSE IS 200 MG / 10 ML
     Route: 042
     Dates: start: 20111129, end: 20130226
  12. IBANDRONIC ACID [Concomitant]
     Active Substance: IBANDRONIC ACID
     Route: 048
     Dates: start: 201011
  13. MEPREDNISONE [Concomitant]
     Active Substance: MEPREDNISONE
     Indication: RHEUMATOID ARTHRITIS
     Route: 048
     Dates: start: 201009

REACTIONS (1)
  - Haemorrhagic stroke [Recovered/Resolved with Sequelae]

NARRATIVE: CASE EVENT DATE: 20130530
